FAERS Safety Report 7963223-0 (Version None)
Quarter: 2011Q4

REPORT INFORMATION
  Report Type: 
  Country: None (occurrence: None)
  Receive Date: 20111208
  Receipt Date: 20111129
  Transmission Date: 20120403
  Serious: No
  Sender: FDA-Public Use
  Company Number: US-BIOGENIDEC-2011BI045206

PATIENT
  Sex: Female

DRUGS (2)
  1. AVONEX [Suspect]
     Indication: MULTIPLE SCLEROSIS
     Route: 030
     Dates: start: 20111010
  2. AVONEX [Suspect]
     Route: 030
     Dates: start: 19980319, end: 20100203

REACTIONS (3)
  - ABASIA [None]
  - INFLUENZA LIKE ILLNESS [None]
  - NERVE INJURY [None]
